FAERS Safety Report 21467850 (Version 1)
Quarter: 2022Q4

REPORT INFORMATION
  Report Type: Spontaneous
  Country: CA (occurrence: CA)
  Receive Date: 20221017
  Receipt Date: 20221017
  Transmission Date: 20230112
  Serious: Yes (Other)
  Sender: FDA-Public Use
  Company Number: CA-PFIZER INC-202200511805

PATIENT
  Age: 50 Year
  Sex: Male
  Weight: 130 kg

DRUGS (2)
  1. ABRILADA [Suspect]
     Active Substance: ADALIMUMAB-AFZB
     Indication: Crohn^s disease
     Dosage: 40 MG, EVERY 2 WEEKS
     Route: 058
     Dates: start: 20220411
  2. IRON [Concomitant]
     Active Substance: IRON
     Dosage: 1 DF DOSAGE
     Route: 065

REACTIONS (3)
  - Haematochezia [Unknown]
  - Contusion [Unknown]
  - Sensitive skin [Unknown]

NARRATIVE: CASE EVENT DATE: 20220101
